FAERS Safety Report 5204242-7 (Version None)
Quarter: 2007Q1

REPORT INFORMATION
  Report Type: 
  Country: None (occurrence: None)
  Receive Date: 20070110
  Receipt Date: 20060612
  Transmission Date: 20070707
  Serious: No
  Sender: FDA-Public Use
  Company Number: US-BRISTOL-MYERS SQUIBB COMPANY-13253729

PATIENT
  Age: 44 Year
  Sex: Female
  Weight: 52 kg

DRUGS (3)
  1. ABILIFY [Suspect]
     Indication: BIPOLAR II DISORDER
     Dosage: INTERRUPTED FOR 2 DAYS, PLAN TO RESTART AT 2.5 MG DAILY ON 20-JAN-2006
     Route: 048
     Dates: start: 20051219
  2. DESYRL [Concomitant]
  3. XANAX [Concomitant]

REACTIONS (1)
  - DYSTONIA [None]
